FAERS Safety Report 8445064-3 (Version None)
Quarter: 2012Q2

REPORT INFORMATION
  Report Type: 
  Country: None (occurrence: None)
  Receive Date: 20120618
  Receipt Date: 20120611
  Transmission Date: 20120825
  Serious: Yes (Hospitalization)
  Sender: FDA-Public Use
  Company Number: US-ACTELION-A-NJ2012-66615

PATIENT

DRUGS (6)
  1. ADCIRCA [Concomitant]
  2. LASIX [Concomitant]
  3. TRACLEER [Suspect]
     Indication: PULMONARY ARTERIAL HYPERTENSION
     Dosage: UNK
     Route: 048
     Dates: start: 20090720
  4. DIGOXIN [Concomitant]
  5. EPOPROSTENOL SODIUM [Concomitant]
     Indication: PULMONARY ARTERIAL HYPERTENSION
     Dosage: UNK
     Dates: start: 20111129
  6. COUMADIN [Concomitant]

REACTIONS (2)
  - LUMBAR VERTEBRAL FRACTURE [None]
  - PAIN [None]
